FAERS Safety Report 8446817-8 (Version None)
Quarter: 2012Q2

REPORT INFORMATION
  Report Type: 
  Country: None (occurrence: None)
  Receive Date: 20120619
  Receipt Date: 20120605
  Transmission Date: 20120825
  Serious: Yes (Other)
  Sender: FDA-Public Use
  Company Number: IT-PAR PHARMACEUTICAL, INC-2012SCPR004439

PATIENT

DRUGS (1)
  1. LEVETIRACETAM [Suspect]
     Indication: PARTIAL SEIZURES WITH SECONDARY GENERALISATION
     Dosage: UPTO 3000 MG/DAY
     Route: 065

REACTIONS (3)
  - ANHEDONIA [None]
  - SEXUAL INHIBITION [None]
  - LOSS OF LIBIDO [None]
